FAERS Safety Report 7449510-3 (Version None)
Quarter: 2011Q2

REPORT INFORMATION
  Report Type: 
  Country: None (occurrence: None)
  Receive Date: 20110502
  Receipt Date: 20110405
  Transmission Date: 20111010
  Serious: No
  Sender: FDA-Public Use
  Company Number: US-BAYER-2011-031465

PATIENT
  Age: 40 Year
  Sex: Female
  Weight: 86.168 kg

DRUGS (1)
  1. ALEVE (CAPLET) [Suspect]
     Dosage: COUNT SIZE 24S
     Route: 048
     Dates: start: 20110404

REACTIONS (1)
  - SOMNOLENCE [None]
